FAERS Safety Report 7242942-8 (Version None)
Quarter: 2011Q1

REPORT INFORMATION
  Report Type: 
  Country: None (occurrence: None)
  Receive Date: 20110125
  Receipt Date: 20110117
  Transmission Date: 20110831
  Serious: Yes (Hospitalization)
  Sender: FDA-Public Use
  Company Number: US-US-EMD SERONO, INC.-7003427

PATIENT
  Sex: Female

DRUGS (3)
  1. CORTISONE SHOTS [Concomitant]
     Indication: BURSITIS
  2. ZOLOFT [Concomitant]
     Indication: DEPRESSION
  3. REBIF [Suspect]
     Indication: MULTIPLE SCLEROSIS
     Route: 058
     Dates: start: 20100301

REACTIONS (5)
  - FALL [None]
  - DIZZINESS [None]
  - DEPRESSION [None]
  - ANGER [None]
  - INTERVERTEBRAL DISC INJURY [None]
